FAERS Safety Report 5458173-8 (Version None)
Quarter: 2007Q3

REPORT INFORMATION
  Report Type: 
  Country: None (occurrence: None)
  Receive Date: 20070917
  Receipt Date: 20070906
  Transmission Date: 20080115
  Serious: Yes (Hospitalization)
  Sender: FDA-Public Use
  Company Number: FR12007-1561

PATIENT
  Age: 44 Year
  Sex: Female

DRUGS (1)
  1. COPPER IUD (INTRAUTERINE CONTRACEPTIVE DEVICE) (UTERINE) [Suspect]
     Indication: CONTRACEPTION
     Dosage: INTRA-UTERINE
     Route: 015

REACTIONS (14)
  - ABDOMINAL ADHESIONS [None]
  - ABDOMINAL STRANGULATED HERNIA [None]
  - ACTINOMYCOSIS [None]
  - ANOREXIA [None]
  - CERVICITIS [None]
  - DEVICE RELATED INFECTION [None]
  - HAEMOGLOBIN DECREASED [None]
  - NAUSEA [None]
  - PELVIC PERITONEAL ADHESIONS [None]
  - PERITONEAL ADHESIONS [None]
  - PURULENCE [None]
  - TUBO-OVARIAN ABSCESS [None]
  - WEIGHT DECREASED [None]
  - WHITE BLOOD CELL COUNT INCREASED [None]
